FAERS Safety Report 16066269 (Version 1)
Quarter: 2019Q2

REPORT INFORMATION
  Report Type: Spontaneous
  Country: US (occurrence: US)
  Receive Date: 20190312
  Receipt Date: 20190312
  Transmission Date: 20190711
  Serious: Yes (Hospitalization)
  Sender: FDA-Public Use
  Company Number: None

PATIENT
  Sex: Female
  Weight: 65.25 kg

DRUGS (12)
  1. IBRANCE [Suspect]
     Active Substance: PALBOCICLIB
     Indication: BREAST CANCER
     Route: 049
     Dates: start: 20180924
  2. BRIMONIDINE [Concomitant]
     Active Substance: BRIMONIDINE TARTRATE
  3. MICROZIDE [Concomitant]
     Active Substance: HYDROCHLOROTHIAZIDE
  4. CARVEDILOL. [Concomitant]
     Active Substance: CARVEDILOL
  5. LISINOPRIL. [Concomitant]
     Active Substance: LISINOPRIL
  6. LOSARTAN. [Concomitant]
     Active Substance: LOSARTAN
  7. PROCHLORPERAZINE. [Concomitant]
     Active Substance: PROCHLORPERAZINE
  8. FASLODEX [Concomitant]
     Active Substance: FULVESTRANT
  9. FLONASE [Concomitant]
     Active Substance: FLUTICASONE PROPIONATE
  10. PRAVASTATIN. [Concomitant]
     Active Substance: PRAVASTATIN
  11. VITAMIN D NOS [Concomitant]
     Active Substance: VITAMIN D NOS
  12. MUCINEX DM [Concomitant]
     Active Substance: DEXTROMETHORPHAN HYDROBROMIDE\GUAIFENESIN

REACTIONS (1)
  - Blood test abnormal [None]
